FAERS Safety Report 4721229-9 (Version None)
Quarter: 2005Q3

REPORT INFORMATION
  Report Type: 
  Country: None (occurrence: None)
  Receive Date: 20050722
  Receipt Date: 20050712
  Transmission Date: 20060218
  Serious: Yes (Hospitalization)
  Sender: FDA-Public Use
  Company Number: US-KINGPHARMUSA00001-K200500934

PATIENT
  Age: 82 Year
  Sex: Male

DRUGS (6)
  1. ALTACE [Suspect]
     Dosage: 5 MG, QD
     Route: 048
     Dates: end: 20050603
  2. PRAVASTATIN [Suspect]
     Dosage: 40 MG, QD
     Route: 048
     Dates: end: 20050603
  3. GLICLAZIDE [Suspect]
     Dosage: 160 MG, QD
     Route: 048
     Dates: end: 20050603
  4. CLOPIDOGREL BISULFATE [Concomitant]
     Dosage: 75 MG, UNK
     Route: 048
  5. OMEPRAZOLE [Concomitant]
     Dosage: 20 MG, UNK
     Route: 048
  6. CLINDAMYCIN [Concomitant]
     Dosage: 600 MG, UNK
     Route: 048
     Dates: start: 20050524, end: 20050531

REACTIONS (6)
  - ALANINE AMINOTRANSFERASE INCREASED [None]
  - BLOOD ALKALINE PHOSPHATASE INCREASED [None]
  - BLOOD BILIRUBIN INCREASED [None]
  - GAMMA-GLUTAMYLTRANSFERASE INCREASED [None]
  - HEPATOMEGALY [None]
  - LIVER FUNCTION TEST ABNORMAL [None]
